FAERS Safety Report 24723890 (Version 1)
Quarter: 2024Q4

REPORT INFORMATION
  Report Type: Spontaneous
  Country: US (occurrence: US)
  Receive Date: 20241211
  Receipt Date: 20241211
  Transmission Date: 20250115
  Serious: Yes (Hospitalization)
  Sender: EISAI
  Company Number: US-Eisai-EC-2024-180011

PATIENT
  Age: 77 Year
  Sex: Female

DRUGS (3)
  1. LECANEMAB [Suspect]
     Active Substance: LECANEMAB
     Indication: Dementia Alzheimer^s type
     Dosage: DOSE UNKNOWN
     Route: 042
  2. LECANEMAB [Suspect]
     Active Substance: LECANEMAB
     Dosage: DOSE UNKNOWN (3RD INFUSION)
     Route: 042
  3. LECANEMAB [Suspect]
     Active Substance: LECANEMAB
     Dosage: DOSE UNKNOWN
     Route: 042

REACTIONS (1)
  - Atrial fibrillation [Recovered/Resolved]
